FAERS Safety Report 19971472 (Version 10)
Quarter: 2023Q1

REPORT INFORMATION
  Report Type: Report from Study
  Country: BR (occurrence: BR)
  Receive Date: 20211019
  Receipt Date: 20230220
  Transmission Date: 20230418
  Serious: Yes (Other)
  Sender: FDA-Public Use
  Company Number: BR-GLAXOSMITHKLINE-BR2020AMR160348

PATIENT

DRUGS (14)
  1. BELIMUMAB [Suspect]
     Active Substance: BELIMUMAB
     Indication: Systemic lupus erythematosus
     Dosage: 10 MG/KG ON DAYS 0, 14 AND 28 DAYS CYCLE
     Route: 042
     Dates: start: 20190206, end: 20201007
  2. BELIMUMAB [Suspect]
     Active Substance: BELIMUMAB
     Dosage: UNK
     Route: 042
     Dates: start: 20201215
  3. BELIMUMAB [Suspect]
     Active Substance: BELIMUMAB
     Dosage: UNK
     Route: 042
     Dates: start: 20210115
  4. BELIMUMAB [Suspect]
     Active Substance: BELIMUMAB
     Dosage: UNK
     Route: 042
     Dates: start: 20210226
  5. BELIMUMAB [Suspect]
     Active Substance: BELIMUMAB
     Dosage: UNK
     Route: 042
     Dates: start: 20210326
  6. BELIMUMAB [Suspect]
     Active Substance: BELIMUMAB
     Dosage: UNK
     Route: 042
     Dates: start: 20210527
  7. BELIMUMAB [Suspect]
     Active Substance: BELIMUMAB
     Dosage: UNK
     Route: 042
     Dates: start: 20210708
  8. BELIMUMAB [Suspect]
     Active Substance: BELIMUMAB
     Dosage: UNK
     Route: 042
     Dates: start: 20210812
  9. BELIMUMAB [Suspect]
     Active Substance: BELIMUMAB
     Dosage: UNK
     Route: 042
     Dates: start: 20211022
  10. BELIMUMAB [Suspect]
     Active Substance: BELIMUMAB
     Dosage: UNK
     Route: 042
     Dates: start: 20220103
  11. BELIMUMAB [Suspect]
     Active Substance: BELIMUMAB
     Dosage: UNK
     Route: 042
     Dates: start: 20220211
  12. BELIMUMAB [Suspect]
     Active Substance: BELIMUMAB
     Dosage: UNK
     Route: 042
     Dates: start: 20220422
  13. BELIMUMAB [Suspect]
     Active Substance: BELIMUMAB
     Dosage: UNK
     Route: 042
     Dates: start: 20220527
  14. BELIMUMAB [Suspect]
     Active Substance: BELIMUMAB
     Dosage: UNK
     Route: 042
     Dates: start: 20230116

REACTIONS (16)
  - Erysipelas [Recovered/Resolved]
  - Erysipelas [Unknown]
  - Erysipelas [Not Recovered/Not Resolved]
  - Uveitis [Recovered/Resolved]
  - Scleritis [Not Recovered/Not Resolved]
  - Osteoarthritis [Unknown]
  - Vaginal haemorrhage [Not Recovered/Not Resolved]
  - COVID-19 [Not Recovered/Not Resolved]
  - Social problem [Recovered/Resolved]
  - Product dose omission issue [Unknown]
  - Inappropriate schedule of product administration [Recovered/Resolved]
  - Inappropriate schedule of product administration [Recovered/Resolved]
  - Inappropriate schedule of product administration [Recovered/Resolved]
  - Inappropriate schedule of product administration [Not Recovered/Not Resolved]
  - Inappropriate schedule of product administration [Recovered/Resolved]
  - Inappropriate schedule of product administration [Unknown]

NARRATIVE: CASE EVENT DATE: 20210201
